FAERS Safety Report 7317777-8 (Version None)
Quarter: 2011Q1

REPORT INFORMATION
  Report Type: 
  Country: None (occurrence: None)
  Receive Date: 20110226
  Receipt Date: 20101209
  Transmission Date: 20110831
  Serious: No
  Sender: FDA-Public Use
  Company Number: US-ALLERGAN-1015998US

PATIENT
  Age: 51 Year
  Sex: Female

DRUGS (1)
  1. BOTOXA? [Suspect]
     Indication: BLEPHAROSPASM
     Dosage: UNK
     Route: 030

REACTIONS (1)
  - DRUG INEFFECTIVE [None]
